FAERS Safety Report 7780289-1 (Version None)
Quarter: 2011Q3

REPORT INFORMATION
  Report Type: 
  Country: None (occurrence: None)
  Receive Date: 20110927
  Receipt Date: 20110919
  Transmission Date: 20111222
  Serious: Yes (Hospitalization)
  Sender: FDA-Public Use
  Company Number: US-ACTELION-A-US2011-52635

PATIENT

DRUGS (3)
  1. TRACLEER [Suspect]
     Indication: PULMONARY ARTERIAL HYPERTENSION
     Dosage: UNK MG, UNK
     Route: 048
     Dates: start: 20110715
  2. ASPIRIN [Concomitant]
  3. OXYGEN [Concomitant]

REACTIONS (5)
  - FLUID RETENTION [None]
  - FATIGUE [None]
  - PULMONARY OEDEMA [None]
  - DYSPNOEA [None]
  - HYPONATRAEMIA [None]
